FAERS Safety Report 14896972 (Version 3)
Quarter: 2018Q2

REPORT INFORMATION
  Report Type: Spontaneous
  Country: JP (occurrence: JP)
  Receive Date: 20180515
  Receipt Date: 20180605
  Transmission Date: 20180711
  Serious: Yes (Other)
  Sender: FDA-Public Use
  Company Number: JP-JNJFOC-20180513263

PATIENT
  Age: 21 Year
  Sex: Female

DRUGS (5)
  1. RIVOTRIL [Concomitant]
     Active Substance: CLONAZEPAM
     Route: 048
  2. QUETIAPINE. [Concomitant]
     Active Substance: QUETIAPINE
     Route: 048
  3. ABILIFY [Concomitant]
     Active Substance: ARIPIPRAZOLE
     Route: 048
  4. METHYLPHENIDATE HYDROCHLORIDE. [Suspect]
     Active Substance: METHYLPHENIDATE HYDROCHLORIDE
     Indication: PRODUCT USED FOR UNKNOWN INDICATION
     Route: 048
  5. XYZAL [Concomitant]
     Active Substance: LEVOCETIRIZINE DIHYDROCHLORIDE
     Route: 048

REACTIONS (5)
  - Asthenia [Unknown]
  - Intentional self-injury [Unknown]
  - Hyperphagia [Unknown]
  - Decreased appetite [Unknown]
  - Self-induced vomiting [Unknown]
